FAERS Safety Report 23343169 (Version 2)
Quarter: 2023Q4

REPORT INFORMATION
  Report Type: Report from Study
  Country: FR (occurrence: None)
  Receive Date: 20231227
  Receipt Date: 20231228
  Transmission Date: 20240110
  Serious: Yes (Other)
  Sender: FDA-Public Use
  Company Number: 2023A259313

PATIENT
  Sex: Male
  Weight: 67 kg

DRUGS (6)
  1. IMFINZI [Suspect]
     Active Substance: DURVALUMAB
     Indication: Neoplasm malignant
     Route: 042
     Dates: start: 20230727
  2. IMFINZI [Suspect]
     Active Substance: DURVALUMAB
     Indication: Neoplasm malignant
     Route: 042
     Dates: start: 20230817
  3. IMFINZI [Suspect]
     Active Substance: DURVALUMAB
     Indication: Neoplasm malignant
     Route: 042
     Dates: start: 20230907
  4. GEMCITABINE CHEMOTHERAPY [Concomitant]
     Dates: start: 20230727
  5. GEMCITABINE CHEMOTHERAPY [Concomitant]
     Dates: start: 20230817
  6. GEMCITABINE CHEMOTHERAPY [Concomitant]
     Dates: start: 20230907

REACTIONS (2)
  - Off label use [Unknown]
  - Deafness [Unknown]
